FAERS Safety Report 15770979 (Version 1)
Quarter: 2018Q4

REPORT INFORMATION
  Report Type: Spontaneous
  Country: US (occurrence: US)
  Receive Date: 20181228
  Receipt Date: 20181228
  Transmission Date: 20190205
  Serious: Yes (Other)
  Sender: FDA-Public Use
  Company Number: None

PATIENT
  Age: 56 Year
  Sex: Female
  Weight: 114.1 kg

DRUGS (1)
  1. OTEZLA [Suspect]
     Active Substance: APREMILAST
     Indication: PSORIASIS
     Route: 048
     Dates: start: 20170101, end: 20171031

REACTIONS (3)
  - Paget^s disease of the vulva [None]
  - Extramammary Paget^s disease [None]
  - Psoriasis [None]

NARRATIVE: CASE EVENT DATE: 20171023
